FAERS Safety Report 4664385-3 (Version None)
Quarter: 2005Q2

REPORT INFORMATION
  Report Type: 
  Country: None (occurrence: None)
  Receive Date: 20050518
  Receipt Date: 20041217
  Transmission Date: 20051028
  Serious: Yes (Life-Threatening, Hospitalization, Disabling)
  Sender: FDA-Public Use
  Company Number: US-MERCK-0412USA02201

PATIENT
  Age: 75 Year
  Sex: Female

DRUGS (1)
  1. VIOXX [Suspect]
     Indication: PAIN
     Route: 048
     Dates: start: 19930101, end: 20040901

REACTIONS (18)
  - ACTIVITIES OF DAILY LIVING IMPAIRED [None]
  - ARTERIAL THROMBOSIS LIMB [None]
  - BACK PAIN [None]
  - BUNDLE BRANCH BLOCK LEFT [None]
  - CELLULITIS [None]
  - CORONARY ARTERY DISEASE [None]
  - FEMORAL ARTERIAL STENOSIS [None]
  - GANGRENE [None]
  - HYPERTENSION [None]
  - IMPAIRED HEALING [None]
  - ISCHAEMIC ULCER [None]
  - LEG AMPUTATION [None]
  - OSTEOARTHRITIS [None]
  - PAIN [None]
  - PAIN IN EXTREMITY [None]
  - PERIPHERAL VASCULAR DISORDER [None]
  - PULMONARY HYPERTENSION [None]
  - TRAUMATIC ULCER [None]
